FAERS Safety Report 12854991 (Version 2)
Quarter: 2017Q1

REPORT INFORMATION
  Report Type: Report from Study
  Country: JP (occurrence: JP)
  Receive Date: 20161017
  Receipt Date: 20170201
  Transmission Date: 20170428
  Serious: Yes (Death, Other)
  Sender: FDA-Public Use
  Company Number: JP-EISAI MEDICAL RESEARCH-EC-2016-013514

PATIENT
  Age: 67 Year
  Sex: Female
  Weight: 38 kg

DRUGS (7)
  1. LEVOTHYROXINE SODIUM HYDRATE [Concomitant]
     Active Substance: LEVOTHYROXINE SODIUM
  2. LENVIMA [Suspect]
     Active Substance: LENVATINIB
     Indication: MEDULLARY THYROID CANCER
     Route: 048
     Dates: start: 20150915, end: 20151101
  3. UREPEARL [Concomitant]
     Active Substance: UREA
  4. LENVIMA [Suspect]
     Active Substance: LENVATINIB
     Route: 048
     Dates: start: 20151102, end: 20151115
  5. PYDOXAL [Concomitant]
     Active Substance: PYRIDOXAL
  6. LENVIMA [Suspect]
     Active Substance: LENVATINIB
     Route: 048
     Dates: start: 20151116, end: 20160103
  7. ALFACALCIDOL [Concomitant]
     Active Substance: ALFACALCIDOL

REACTIONS (4)
  - Sepsis [Fatal]
  - Diarrhoea [Not Recovered/Not Resolved]
  - Hypothyroidism [Recovering/Resolving]
  - Platelet count decreased [Not Recovered/Not Resolved]

NARRATIVE: CASE EVENT DATE: 20150920
